FAERS Safety Report 11401460 (Version 1)
Quarter: 2015Q3

REPORT INFORMATION
  Report Type: Spontaneous
  Country: US (occurrence: US)
  Receive Date: 20150820
  Receipt Date: 20150820
  Transmission Date: 20151125
  Serious: No
  Sender: FDA-Public Use
  Company Number: US-009507513-1507USA010336

PATIENT
  Age: 24 Year
  Sex: Female
  Weight: 47.62 kg

DRUGS (2)
  1. IMPLANON [Suspect]
     Active Substance: ETONOGESTREL
     Indication: CONTRACEPTION
     Dosage: 3 YEARS, IN HER LEFT ARM
     Route: 059
     Dates: start: 200906, end: 201206
  2. IMPLANON [Suspect]
     Active Substance: ETONOGESTREL
     Indication: MENSTRUAL CYCLE MANAGEMENT
     Dosage: 3 YEARS, IN HER LEFT ARM
     Route: 059
     Dates: start: 201206, end: 201506

REACTIONS (9)
  - Device dislocation [Recovered/Resolved]
  - Pain in extremity [Unknown]
  - Device difficult to use [Recovered/Resolved]
  - Incision site complication [Not Recovered/Not Resolved]
  - Medical device complication [Recovered/Resolved]
  - Device deployment issue [Recovered/Resolved]
  - Amenorrhoea [Recovered/Resolved]
  - Hypoaesthesia [Unknown]
  - Depressed mood [Recovering/Resolving]

NARRATIVE: CASE EVENT DATE: 201206
